FAERS Safety Report 7381954-0 (Version None)
Quarter: 2011Q1

REPORT INFORMATION
  Report Type: 
  Country: None (occurrence: None)
  Receive Date: 20110329
  Receipt Date: 20110315
  Transmission Date: 20110831
  Serious: Yes (Other)
  Sender: FDA-Public Use
  Company Number: US-CEPHALON-2011001230

PATIENT
  Sex: Male
  Weight: 120 kg

DRUGS (4)
  1. NUVIGIL [Suspect]
     Indication: SOMNOLENCE
  2. WELLBUTRIN [Concomitant]
  3. PROZAC [Concomitant]
  4. NUVIGIL [Suspect]
     Indication: DEPRESSION
     Route: 048
     Dates: start: 20091001, end: 20110115

REACTIONS (3)
  - ABNORMAL BEHAVIOUR [None]
  - INSOMNIA [None]
  - THINKING ABNORMAL [None]
